FAERS Safety Report 6264574-0 (Version None)
Quarter: 2009Q3

REPORT INFORMATION
  Report Type: 
  Country: None (occurrence: None)
  Receive Date: 20090710
  Receipt Date: 20090630
  Transmission Date: 20100115
  Serious: Yes (Other)
  Sender: FDA-Public Use
  Company Number: PHHY2009BR27044

PATIENT
  Sex: Female

DRUGS (2)
  1. DIOVAN HCT [Suspect]
     Dosage: ONE TABLET (160/12.5 MG) IN THE MORNING
     Route: 048
  2. RASILEZ [Suspect]
     Dosage: ONE TABLET (150 MG) IN THE NIGHT
     Route: 048

REACTIONS (2)
  - ARTHRALGIA [None]
  - UPPER LIMB FRACTURE [None]
